FAERS Safety Report 20835791 (Version 1)
Quarter: 2022Q2

REPORT INFORMATION
  Report Type: 
  Country: None (occurrence: None)
  Receive Date: 20220516
  Receipt Date: 20220516
  Transmission Date: 20220720
  Serious: No
  Sender: FDA-Public Use
  Company Number: DE-ROCHE-3039454

PATIENT
  Weight: 73 kg

DRUGS (10)
  1. ATEZOLIZUMAB [Suspect]
     Active Substance: ATEZOLIZUMAB
     Dosage: MOST RECENT DOSE: 01/FEB/2022, 22/FEB/2022
     Dates: start: 20210907
  2. PACLITAXEL [Suspect]
     Active Substance: PACLITAXEL
     Dosage: MOST RECENT DOSE: 14/DEC/2021
     Dates: start: 20210928
  3. CARBOPLATIN [Suspect]
     Active Substance: CARBOPLATIN
     Dosage: MOST RECENT DOSE: 14/DEC/2021
     Dates: start: 20210928
  4. EPIRUBICIN [Suspect]
     Active Substance: EPIRUBICIN
     Dosage: DATE OF LAST DOSE PRIOR TO SAE: 01/FEB/2022, 22/FEB/2022
     Dates: start: 20211221
  5. CYCLOPHOSPHAMIDE [Suspect]
     Active Substance: CYCLOPHOSPHAMIDE
     Dosage: MOST RECENT DOSE: 01/FEB/2022, 22/FEB/2022
     Dates: start: 20211221
  6. CLINDAMYCIN [Concomitant]
     Active Substance: CLINDAMYCIN
     Dates: start: 20210918, end: 20211002
  7. LEVOTHYROXINE SODIUM [Concomitant]
     Active Substance: LEVOTHYROXINE SODIUM
     Dates: start: 2021
  8. LEVOTHYROXINE SODIUM [Concomitant]
     Active Substance: LEVOTHYROXINE SODIUM
     Dates: start: 2021
  9. FILGRASTIM [Concomitant]
     Active Substance: FILGRASTIM
     Dosage: 30 MU OTHER
     Dates: start: 20211005
  10. FERRO-SANOL DUODENAL [Concomitant]
     Active Substance: FERROUS GLYCINE SULFATE
     Dates: start: 20211112

REACTIONS (4)
  - Blood creatinine increased [None]
  - General physical health deterioration [None]
  - Pancytopenia [None]
  - Wound infection [None]

NARRATIVE: CASE EVENT DATE: 20220201
